FAERS Safety Report 12642117 (Version 1)
Quarter: 2016Q3

REPORT INFORMATION
  Report Type: Spontaneous
  Country: CN (occurrence: CN)
  Receive Date: 20160810
  Receipt Date: 20160810
  Transmission Date: 20161109
  Serious: Yes (Other)
  Sender: FDA-Public Use
  Company Number: CN-JNJFOC-20160711344

PATIENT
  Age: 53 Year
  Sex: Female

DRUGS (10)
  1. REMICADE [Suspect]
     Active Substance: INFLIXIMAB
     Indication: CROHN^S DISEASE
     Route: 042
     Dates: start: 20121120
  2. REMICADE [Suspect]
     Active Substance: INFLIXIMAB
     Indication: CROHN^S DISEASE
     Route: 042
     Dates: start: 20130204
  3. REMICADE [Suspect]
     Active Substance: INFLIXIMAB
     Indication: CROHN^S DISEASE
     Route: 042
     Dates: start: 20130723
  4. REMICADE [Suspect]
     Active Substance: INFLIXIMAB
     Indication: CROHN^S DISEASE
     Route: 042
     Dates: start: 20121106
  5. REMICADE [Suspect]
     Active Substance: INFLIXIMAB
     Indication: CROHN^S DISEASE
     Route: 042
     Dates: start: 20121217
  6. REMICADE [Suspect]
     Active Substance: INFLIXIMAB
     Indication: CROHN^S DISEASE
     Route: 042
     Dates: start: 20160628
  7. REMICADE [Suspect]
     Active Substance: INFLIXIMAB
     Indication: CROHN^S DISEASE
     Route: 042
     Dates: start: 20130406
  8. REMICADE [Suspect]
     Active Substance: INFLIXIMAB
     Indication: CROHN^S DISEASE
     Dosage: 5 TIMES THE PATIENT HAD RECEIVED INFLIXIMAB IN THIS TIME INTERVAL.
     Route: 042
     Dates: start: 200903, end: 201009
  9. REMICADE [Suspect]
     Active Substance: INFLIXIMAB
     Indication: CROHN^S DISEASE
     Route: 042
     Dates: start: 20160712, end: 20160712
  10. REMICADE [Suspect]
     Active Substance: INFLIXIMAB
     Indication: CROHN^S DISEASE
     Route: 042
     Dates: start: 20160615

REACTIONS (18)
  - Hepatic cyst [Unknown]
  - Fatigue [Recovering/Resolving]
  - Vomiting [Unknown]
  - Blood pressure decreased [Recovered/Resolved]
  - Crohn^s disease [Unknown]
  - Melaena [Recovering/Resolving]
  - Infusion related reaction [Recovered/Resolved]
  - Drug hypersensitivity [Recovered/Resolved]
  - Flushing [Recovered/Resolved]
  - Heart rate increased [Recovered/Resolved]
  - Rash pruritic [Recovered/Resolved]
  - Laryngeal oedema [Recovering/Resolving]
  - Large intestine polyp [Recovering/Resolving]
  - Nasopharyngitis [Recovering/Resolving]
  - Dyspnoea [Recovered/Resolved]
  - Cough [Recovering/Resolving]
  - Pharyngeal oedema [Recovered/Resolved]
  - Small intestinal stenosis [Recovering/Resolving]

NARRATIVE: CASE EVENT DATE: 201012
